FAERS Safety Report 8551927 (Version 3)
Quarter: 2013Q4

REPORT INFORMATION
  Report Type: Spontaneous
  Country: CA (occurrence: CA)
  Receive Date: 20120508
  Receipt Date: 20131105
  Transmission Date: 20140711
  Serious: Yes (Death, Hospitalization, Other)
  Sender: FDA-Public Use
  Company Number: CA-ROCHE-1063890

PATIENT
  Sex: Male
  Weight: 94 kg

DRUGS (12)
  1. PEGASYS [Suspect]
     Indication: HEPATITIS INFECTIOUS
     Route: 058
     Dates: start: 20111120, end: 20120414
  2. PEGASYS [Suspect]
     Dosage: DURATION: 147 DAYS?DOSE DECREASED ON AN UNKNOWN DATE.
     Route: 058
  3. RIBAVIRIN [Suspect]
     Indication: HEPATITIS INFECTIOUS
     Dosage: DIVIDED DOSE?DURATION: 144 DAYS
     Route: 048
     Dates: start: 20111120, end: 20120411
  4. RIBAVIRIN [Suspect]
     Route: 048
  5. RIBAVIRIN [Suspect]
     Route: 048
  6. RIBAVIRIN [Suspect]
     Route: 048
  7. RIBAVIRIN [Suspect]
     Route: 048
  8. RIBAVIRIN [Suspect]
     Route: 048
  9. RIBAVIRIN [Suspect]
     Route: 048
  10. VICTRELIS [Suspect]
     Indication: HEPATITIS INFECTIOUS
     Dosage: DURATION: 119 DAYS
     Route: 048
     Dates: start: 20111218, end: 20120414
  11. FUROSEMIDE [Concomitant]
     Dosage: VARYING BETWEEN 40-80 MG
     Route: 065
  12. SPIRONOLACTONE [Concomitant]
     Route: 048

REACTIONS (7)
  - Hepatic cirrhosis [Fatal]
  - Haemolytic anaemia [Fatal]
  - Splenomegaly [Fatal]
  - Ascites [Fatal]
  - Condition aggravated [Fatal]
  - Hepatic cirrhosis [Fatal]
  - Vasculitis [Fatal]
